FAERS Safety Report 7582372-2 (Version None)
Quarter: 2011Q2

REPORT INFORMATION
  Report Type: 
  Country: None (occurrence: None)
  Receive Date: 20110630
  Receipt Date: 20110620
  Transmission Date: 20111010
  Serious: No
  Sender: FDA-Public Use
  Company Number: CA-JNJFOC-20110610294

PATIENT
  Sex: Male
  Weight: 100.4 kg

DRUGS (14)
  1. GOLIMUMAB [Suspect]
     Route: 058
     Dates: start: 20110316
  2. METFORMIN HCL [Concomitant]
     Route: 048
     Dates: start: 20100908
  3. METHOTREXATE [Concomitant]
     Route: 058
     Dates: start: 20100513
  4. CRESTOR [Concomitant]
     Route: 048
     Dates: start: 20100510
  5. BETAMETHASONE VALERATE [Concomitant]
     Route: 061
     Dates: start: 20081029
  6. ASPIRIN [Concomitant]
     Route: 048
     Dates: start: 20100908
  7. GOLIMUMAB [Suspect]
     Indication: PSORIATIC ARTHROPATHY
     Route: 058
     Dates: start: 20060517
  8. CALCIUM CARBONATE [Concomitant]
     Route: 048
     Dates: start: 20100512
  9. REACTINE [Concomitant]
     Route: 048
     Dates: start: 20070201
  10. FOLIC ACID [Concomitant]
     Route: 048
     Dates: start: 20070517
  11. FLONASE [Concomitant]
     Route: 045
     Dates: start: 20071215
  12. GOLIMUMAB [Suspect]
     Route: 058
     Dates: start: 20110119
  13. PRILOSEC [Concomitant]
     Route: 048
     Dates: start: 20070717
  14. MULTI-VITAMINS [Concomitant]
     Route: 048
     Dates: start: 20091101

REACTIONS (1)
  - BASAL CELL CARCINOMA [None]
